FAERS Safety Report 6279743-3 (Version None)
Quarter: 2009Q3

REPORT INFORMATION
  Report Type: 
  Country: None (occurrence: None)
  Receive Date: 20090721
  Receipt Date: 20090706
  Transmission Date: 20100115
  Serious: Yes (Other)
  Sender: FDA-Public Use
  Company Number: 2009-1496

PATIENT
  Age: 59 Year
  Sex: Female

DRUGS (1)
  1. SOMATULINE AUTOSOLUTION 90MG (LANREOTIDE) (LANREOTIDE ACETATE) [Suspect]
     Indication: CARCINOID TUMOUR
     Dosage: (90 MG) INTRAMUSCULAR
     Route: 030
     Dates: start: 20040701, end: 20090201

REACTIONS (1)
  - INJECTION SITE NODULE [None]
